FAERS Safety Report 23369326 (Version 1)
Quarter: 2024Q1

REPORT INFORMATION
  Report Type: Spontaneous
  Country: GR (occurrence: GR)
  Receive Date: 20240105
  Receipt Date: 20240105
  Transmission Date: 20240410
  Serious: Yes (Life-Threatening, Hospitalization, Other)
  Sender: FDA-Public Use
  Company Number: GR-DEM-008266

PATIENT
  Age: 19 Year
  Sex: Male

DRUGS (9)
  1. DEXAMETHASONE [Suspect]
     Active Substance: DEXAMETHASONE
     Indication: Thyroidectomy
     Route: 065
     Dates: start: 20230829, end: 20230829
  2. CEFOXITIN [Suspect]
     Active Substance: CEFOXITIN SODIUM
     Indication: Thyroidectomy
     Route: 065
     Dates: start: 20230829, end: 20230829
  3. PROPOFOL [Suspect]
     Active Substance: PROPOFOL
     Indication: Thyroidectomy
     Route: 065
     Dates: start: 20230829, end: 20230829
  4. REMIFENTANIL [Suspect]
     Active Substance: REMIFENTANIL
     Indication: Thyroidectomy
     Route: 065
     Dates: start: 20230829, end: 20230829
  5. REMIFENTANIL HYDROCHLORIDE [Suspect]
     Active Substance: REMIFENTANIL HYDROCHLORIDE
     Indication: Thyroidectomy
     Route: 065
     Dates: start: 20230829, end: 20230829
  6. SUGAMMADEX [Suspect]
     Active Substance: SUGAMMADEX
     Indication: Thyroidectomy
     Route: 065
     Dates: start: 20230829, end: 20230829
  7. ROCURONIUM [Suspect]
     Active Substance: ROCURONIUM BROMIDE
     Indication: Thyroidectomy
     Route: 065
     Dates: start: 20230829, end: 20230829
  8. FENTANYL [Suspect]
     Active Substance: FENTANYL\FENTANYL CITRATE
     Indication: Thyroidectomy
     Route: 065
     Dates: start: 20230829, end: 20230829
  9. OMEPRAZOLE [Suspect]
     Active Substance: OMEPRAZOLE
     Indication: Thyroidectomy
     Route: 065
     Dates: start: 20230829, end: 20230829

REACTIONS (1)
  - Anaphylactic shock [Recovered/Resolved]

NARRATIVE: CASE EVENT DATE: 20230829
